FAERS Safety Report 8017170-9 (Version None)
Quarter: 2012Q1

REPORT INFORMATION
  Report Type: 
  Country: None (occurrence: None)
  Receive Date: 20120102
  Receipt Date: 20111221
  Transmission Date: 20120608
  Serious: Yes (Other)
  Sender: FDA-Public Use
  Company Number: JP-ROCHE-1024164

PATIENT

DRUGS (2)
  1. HERCEPTIN [Suspect]
     Indication: GASTRIC CANCER
     Route: 041
     Dates: start: 20111124, end: 20111208
  2. CISPLATIN [Suspect]
     Indication: GASTRIC CANCER
     Dosage: DOSAGE IS UNCERTAIN.
     Route: 041

REACTIONS (1)
  - CEREBRAL INFARCTION [None]
